FAERS Safety Report 15946458 (Version 1)
Quarter: 2019Q1

REPORT INFORMATION
  Report Type: Report from Study
  Country: US (occurrence: US)
  Receive Date: 20190211
  Receipt Date: 20190211
  Transmission Date: 20190417
  Serious: Yes (Other)
  Sender: FDA-Public Use
  Company Number: US-JNJFOC-20190208172

PATIENT
  Age: 75 Year
  Sex: Male

DRUGS (11)
  1. IMBRUVICA [Suspect]
     Active Substance: IBRUTINIB
     Indication: LYMPHOCYTIC LEUKAEMIA
     Route: 048
     Dates: start: 20180831
  2. CARBIDOPA-LEVODOPA-B [Concomitant]
     Active Substance: CARBIDOPA\LEVODOPA
     Dosage: 20-100 MG
  3. MYRBETRIQ [Concomitant]
     Active Substance: MIRABEGRON
  4. IMBRUVICA [Suspect]
     Active Substance: IBRUTINIB
     Indication: LYMPHOCYTIC LEUKAEMIA
     Route: 048
     Dates: start: 20181210, end: 201901
  5. ACYCLOVIR. [Concomitant]
     Active Substance: ACYCLOVIR
  6. PREDNISONE. [Concomitant]
     Active Substance: PREDNISONE
  7. LOPERAMIDE [Concomitant]
     Active Substance: LOPERAMIDE
  8. ONDANSETRON [Concomitant]
     Active Substance: ONDANSETRON
  9. ALLOPURINOL. [Concomitant]
     Active Substance: ALLOPURINOL
  10. PROMACTA [Concomitant]
     Active Substance: ELTROMBOPAG OLAMINE
  11. INDAPAMIDE. [Concomitant]
     Active Substance: INDAPAMIDE

REACTIONS (3)
  - Haemorrhage [Unknown]
  - Incorrect dose administered [Unknown]
  - Off label use [Unknown]

NARRATIVE: CASE EVENT DATE: 20181210
